FAERS Safety Report 16832930 (Version 2)
Quarter: 2020Q1

REPORT INFORMATION
  Report Type: Spontaneous
  Country: JP (occurrence: JP)
  Receive Date: 20190920
  Receipt Date: 20200306
  Transmission Date: 20200409
  Serious: Yes (Death, Other)
  Sender: FDA-Public Use
  Company Number: JP-ASTRAZENECA-2019SF33632

PATIENT
  Age: 65 Year
  Sex: Female

DRUGS (11)
  1. SEROQUEL [Suspect]
     Active Substance: QUETIAPINE FUMARATE
     Indication: SCHIZOPHRENIA
     Route: 048
     Dates: start: 20100814, end: 20180826
  2. CLONAZEPAM. [Suspect]
     Active Substance: CLONAZEPAM
     Indication: SCHIZOPHRENIA
     Dosage: 3.0MG UNKNOWN
     Route: 048
  3. NELBON [Concomitant]
     Active Substance: NITRAZEPAM
     Route: 065
     Dates: start: 20151121, end: 20180226
  4. PANTOSIN [Concomitant]
     Active Substance: PANTETHINE
     Route: 065
     Dates: start: 20160628, end: 20180829
  5. AMITIZA [Concomitant]
     Active Substance: LUBIPROSTONE
     Route: 065
     Dates: start: 20170916, end: 20180829
  6. RISUMIC [Concomitant]
     Active Substance: AMEZINIUM METILSULFATE
     Route: 065
     Dates: start: 20150225, end: 20180826
  7. URSODEOXYCHOLIC ACID [Concomitant]
     Active Substance: URSODIOL
     Dosage: 1
     Route: 065
  8. RIVOTRIL [Concomitant]
     Active Substance: CLONAZEPAM
     Route: 065
     Dates: start: 20040305, end: 20180826
  9. GASTEEL [Concomitant]
     Route: 065
     Dates: start: 20160716, end: 20180829
  10. MAGNESIUM OXIDE. [Concomitant]
     Active Substance: MAGNESIUM OXIDE
     Route: 065
     Dates: start: 20170715, end: 20180827
  11. MIYA-BM [Concomitant]
     Active Substance: CLOSTRIDIUM BUTYRICUM SPORES STRAIN M-55
     Route: 065
     Dates: start: 20170424, end: 20180829

REACTIONS (2)
  - Vocal cord paralysis [Fatal]
  - Pneumonia aspiration [Fatal]

NARRATIVE: CASE EVENT DATE: 20180826
